FAERS Safety Report 16927937 (Version 15)
Quarter: 2020Q3

REPORT INFORMATION
  Report Type: Report from Study
  Country: US (occurrence: US)
  Receive Date: 20191017
  Receipt Date: 20200917
  Transmission Date: 20201102
  Serious: No
  Sender: FDA-Public Use
  Company Number: US-IPSEN BIOPHARMACEUTICALS, INC.-2019-07602

PATIENT
  Age: 10 Year
  Sex: Female
  Weight: 53 kg

DRUGS (1)
  1. DYSPORT [Suspect]
     Active Substance: ABOBOTULINUMTOXINA
     Indication: MUSCLE SPASTICITY
     Dosage: 750 IU
     Route: 030
     Dates: start: 20180425, end: 20180425

REACTIONS (13)
  - Otitis media acute [Recovered/Resolved]
  - Viral upper respiratory tract infection [Recovered/Resolved]
  - Oropharyngeal pain [Recovered/Resolved]
  - Viral pharyngitis [Recovered/Resolved]
  - Otitis externa [Recovered/Resolved]
  - Influenza [Recovered/Resolved]
  - Fall [Recovered/Resolved]
  - Viral pharyngitis [Recovered/Resolved]
  - Cough [Recovered/Resolved]
  - Prescribed overdose [Recovered/Resolved]
  - Pharyngitis [Recovered/Resolved]
  - Prescribed overdose [Recovered/Resolved]
  - Viral pharyngitis [Recovered/Resolved]

NARRATIVE: CASE EVENT DATE: 20180822
